FAERS Safety Report 17797883 (Version 4)
Quarter: 2021Q3

REPORT INFORMATION
  Report Type: Spontaneous
  Country: US (occurrence: US)
  Receive Date: 20200518
  Receipt Date: 20210827
  Transmission Date: 20211014
  Serious: No
  Sender: FDA-Public Use
  Company Number: US-PFIZER INC-2016518871

PATIENT
  Age: 67 Year
  Sex: Female

DRUGS (1)
  1. RELPAX [Suspect]
     Active Substance: ELETRIPTAN HYDROBROMIDE
     Indication: MIGRAINE
     Dosage: 40 MG
     Route: 048
     Dates: start: 2005

REACTIONS (3)
  - Illness [Unknown]
  - Intentional product misuse [Unknown]
  - Feeling abnormal [Unknown]
